FAERS Safety Report 7122733-9 (Version None)
Quarter: 2010Q4

REPORT INFORMATION
  Report Type: 
  Country: None (occurrence: None)
  Receive Date: 20101124
  Receipt Date: 20101110
  Transmission Date: 20110411
  Serious: Yes (Other)
  Sender: FDA-Public Use
  Company Number: US-PFIZER INC-2010145287

PATIENT
  Sex: Female
  Weight: 55.4 kg

DRUGS (3)
  1. XALATAN [Suspect]
     Indication: GLAUCOMA
     Dosage: ONE DROP IN EACH EYE DAILY
     Route: 047
     Dates: start: 20100401
  2. BRIMONIDINE [Concomitant]
     Dosage: UNK
  3. DORZOLAMIDE HYDROCHLORIDE AND TIMOLOL MALEATE [Concomitant]
     Dosage: UNK

REACTIONS (6)
  - EYE PAIN [None]
  - EYELID OEDEMA [None]
  - LACRIMATION INCREASED [None]
  - PHOTOPHOBIA [None]
  - THYROID DISORDER [None]
  - VISUAL IMPAIRMENT [None]
